FAERS Safety Report 10168468 (Version 2)
Quarter: 2014Q2

REPORT INFORMATION
  Report Type: Report from Study
  Country: US (occurrence: US)
  Receive Date: 20140513
  Receipt Date: 20140513
  Transmission Date: 20141212
  Serious: Yes (Hospitalization, Disabling, Other)
  Sender: FDA-Public Use
  Company Number: US-IPSEN BIOPHARMACEUTICALS, INC.-2009-0497

PATIENT
  Age: 13 Year
  Sex: Male
  Weight: 51 kg

DRUGS (3)
  1. INCRELEX 10MG/ML (MECASERMIN) (MECASERMIN) [Suspect]
     Indication: PRIMARY INSULIN LIKE GROWTH FACTOR-1 DEFICIENCY
     Route: 058
     Dates: start: 20070407, end: 20090113
  2. INCRELEX 10MG/ML (MECASERMIN) (MECASERMIN) [Suspect]
     Indication: BODY HEIGHT BELOW NORMAL
     Route: 058
     Dates: start: 20070324
  3. INCRELEX 10MG/ML (MECASERMIN) (MECASERMIN) [Suspect]
     Indication: OFF LABEL USE

REACTIONS (2)
  - Epiphysiolysis [Recovered/Resolved]
  - Osteonecrosis [Recovered/Resolved with Sequelae]
